FAERS Safety Report 7681757-3 (Version None)
Quarter: 2011Q3

REPORT INFORMATION
  Report Type: 
  Country: None (occurrence: None)
  Receive Date: 20110812
  Receipt Date: 20110803
  Transmission Date: 20111222
  Serious: Yes (Other)
  Sender: FDA-Public Use
  Company Number: US-ASTRAZENECA-2009UW06562

PATIENT
  Age: 72 Year
  Sex: Female
  Weight: 63.5 kg

DRUGS (7)
  1. SYNTHROID [Concomitant]
  2. CRESTOR [Suspect]
     Indication: BLOOD CHOLESTEROL
     Route: 048
     Dates: start: 20080101
  3. CRESTOR [Suspect]
     Route: 048
  4. DEMADEX [Concomitant]
  5. DIAZIDE [Concomitant]
  6. ACTINOL [Concomitant]
  7. CRESTOR [Suspect]
     Route: 048
     Dates: start: 20090212

REACTIONS (2)
  - FACE OEDEMA [None]
  - MUSCLE SPASMS [None]
